FAERS Safety Report 4347708-4 (Version None)
Quarter: 2004Q2

REPORT INFORMATION
  Report Type: 
  Country: None (occurrence: None)
  Receive Date: 20040422
  Receipt Date: 20040406
  Transmission Date: 20050107
  Serious: Yes (Hospitalization)
  Sender: FDA-Public Use
  Company Number: USA040464241

PATIENT
  Age: 5 Year
  Sex: Male

DRUGS (1)
  1. STRATTERA [Suspect]
     Dates: start: 20030401, end: 20030401

REACTIONS (2)
  - HOMICIDAL IDEATION [None]
  - PHARMACEUTICAL PRODUCT COMPLAINT [None]
